FAERS Safety Report 20193366 (Version 8)
Quarter: 2022Q1

REPORT INFORMATION
  Report Type: Report from Study
  Country: CN (occurrence: None)
  Receive Date: 20211216
  Receipt Date: 20220317
  Transmission Date: 20220423
  Serious: Yes (Hospitalization)
  Sender: FDA-Public Use
  Company Number: CN-ROCHE-2979164

PATIENT
  Age: 53 Year
  Sex: Female
  Weight: 71.6 kg

DRUGS (25)
  1. PLACEBO [Suspect]
     Active Substance: UNSPECIFIED INGREDIENT
     Indication: Non-small cell lung cancer
     Dosage: DATE OF MOST RECENT DOSE OF ATEZOLIZUMAB  PRIOR TO AE : 28/NOV/2021
     Route: 041
     Dates: start: 20211015
  2. BEVACIZUMAB [Suspect]
     Active Substance: BEVACIZUMAB
     Indication: Non-small cell lung cancer
     Dosage: DATE OF MOST RECENT DOSE OF BEVACIZUMAB 990MG PRIOR TO AE : 28/NOV/2021
     Route: 042
     Dates: start: 20211015
  3. CARBOPLATIN [Suspect]
     Active Substance: CARBOPLATIN
     Indication: Non-small cell lung cancer
     Dosage: DATE OF MOST RECENT DOSE OF CARBOPLATIN 900MG PRIOR TO AE : 28/NOV/2021
     Route: 042
     Dates: start: 20211015
  4. PEMETREXED [Suspect]
     Active Substance: PEMETREXED
     Indication: Non-small cell lung cancer
     Dosage: DATE OF MOST RECENT DOSE OF PEMETREXED 850MG PRIOR TO AE : 28/NOV/2021
     Route: 042
     Dates: start: 20211015
  5. FOLIC ACID [Concomitant]
     Active Substance: FOLIC ACID
     Dates: start: 20211014
  6. DEXAMETHASONE ACETATE [Concomitant]
     Active Substance: DEXAMETHASONE ACETATE
     Indication: Prophylaxis
     Route: 048
     Dates: start: 20211126, end: 20211128
  7. DEXAMETHASONE ACETATE [Concomitant]
     Active Substance: DEXAMETHASONE ACETATE
     Route: 048
     Dates: start: 20211216, end: 20211218
  8. DEXAMETHASONE ACETATE [Concomitant]
     Active Substance: DEXAMETHASONE ACETATE
     Route: 048
     Dates: start: 20220106, end: 20220108
  9. DEXAMETHASONE ACETATE [Concomitant]
     Active Substance: DEXAMETHASONE ACETATE
     Route: 048
     Dates: start: 20220207, end: 20220209
  10. GRANULOCYTES [Concomitant]
     Active Substance: GRANULOCYTES
     Indication: White blood cell count decreased
     Dates: start: 20211125, end: 20211126
  11. FAMOTIDINE [Concomitant]
     Active Substance: FAMOTIDINE
     Indication: Prophylaxis
     Dates: start: 20211127, end: 20211127
  12. METOCLOPRAMIDE DIHYDROCHLORIDE [Concomitant]
     Indication: Prophylaxis
     Dates: start: 20211127, end: 20211127
  13. METOCLOPRAMIDE DIHYDROCHLORIDE [Concomitant]
     Dates: start: 20211217, end: 20211217
  14. METOCLOPRAMIDE DIHYDROCHLORIDE [Concomitant]
     Dates: start: 20220107, end: 20220107
  15. TROPISETRON HYDROCHLORIDE [Concomitant]
     Active Substance: TROPISETRON HYDROCHLORIDE
     Indication: Prophylaxis
     Dates: start: 20211127, end: 20211127
  16. TROPISETRON HYDROCHLORIDE [Concomitant]
     Active Substance: TROPISETRON HYDROCHLORIDE
     Dates: start: 20211217, end: 20211217
  17. TROPISETRON HYDROCHLORIDE [Concomitant]
     Active Substance: TROPISETRON HYDROCHLORIDE
     Dates: start: 20220107, end: 20220107
  18. DIPHENHYDRAMINE HYDROCHLORIDE [Concomitant]
     Active Substance: DIPHENHYDRAMINE HYDROCHLORIDE
     Indication: Prophylaxis
     Dates: start: 20211127, end: 20211127
  19. DIPHENHYDRAMINE HYDROCHLORIDE [Concomitant]
     Active Substance: DIPHENHYDRAMINE HYDROCHLORIDE
     Dates: start: 20220107, end: 20220107
  20. OMEPRAZOLE SODIUM [Concomitant]
     Active Substance: OMEPRAZOLE SODIUM
     Indication: Prophylaxis
     Dates: start: 20211217, end: 20211217
  21. OMEPRAZOLE SODIUM [Concomitant]
     Active Substance: OMEPRAZOLE SODIUM
     Dates: start: 20220107, end: 20220107
  22. THROMBOPOIETIN [Concomitant]
     Active Substance: THROMBOPOIETIN
     Indication: Prophylaxis
     Dates: start: 20211217, end: 20211217
  23. MECAPEGFILGRASTIM [Concomitant]
     Active Substance: MECAPEGFILGRASTIM
     Dates: start: 20211217, end: 20211217
  24. AMBROXOL [Concomitant]
     Active Substance: AMBROXOL
     Dates: start: 20211212, end: 20211212
  25. IRON SUCROSE [Concomitant]
     Active Substance: IRON SUCROSE
     Dates: start: 20211214

REACTIONS (1)
  - Myelosuppression [Recovered/Resolved]

NARRATIVE: CASE EVENT DATE: 20211211
